FAERS Safety Report 16443502 (Version 2)
Quarter: 2019Q2

REPORT INFORMATION
  Report Type: Spontaneous
  Country: CH (occurrence: CH)
  Receive Date: 20190618
  Receipt Date: 20190618
  Transmission Date: 20190711
  Serious: Yes (Other)
  Sender: FDA-Public Use
  Company Number: CH-ASTELLAS-2019US024390

PATIENT
  Sex: Female
  Weight: 43 kg

DRUGS (4)
  1. NEUTRASAL [Concomitant]
     Active Substance: CALCIUM CHLORIDE\POTASSIUM CHLORIDE\SODIUM CHLORIDE
     Indication: MULTIPLE SCLEROSIS
     Dosage: UNK, UNKNOWN FREQ.
     Route: 065
  2. SIRDALUD [Concomitant]
     Active Substance: TIZANIDINE
     Indication: MULTIPLE SCLEROSIS
     Dosage: UNK, UNKNOWN FREQ.
     Route: 065
  3. DICLOFENAC [Concomitant]
     Active Substance: DICLOFENAC
     Indication: MULTIPLE SCLEROSIS
     Dosage: UNK, UNKNOWN FREQ.
     Route: 065
  4. TARCEVA [Suspect]
     Active Substance: ERLOTINIB HYDROCHLORIDE
     Indication: LUNG ADENOCARCINOMA
     Route: 048

REACTIONS (3)
  - Lymphoedema [Recovered/Resolved]
  - Skin maceration [Not Recovered/Not Resolved]
  - Capillary leak syndrome [Not Recovered/Not Resolved]
